FAERS Safety Report 11883924 (Version 1)
Quarter: 2016Q1

REPORT INFORMATION
  Report Type: Spontaneous
  Country: FR (occurrence: FR)
  Receive Date: 20160102
  Receipt Date: 20160102
  Transmission Date: 20160526
  Serious: Yes (Hospitalization, Other)
  Sender: FDA-Public Use
  Company Number: FR-BRISTOL-MYERS SQUIBB COMPANY-10029551

PATIENT
  Age: 1 Day
  Sex: Female
  Weight: 2.9 kg

DRUGS (8)
  1. ZERIT [Suspect]
     Active Substance: STAVUDINE
     Indication: HIV INFECTION
     Dosage: 3 ML, BID
     Route: 048
  2. VIRACEPT [Suspect]
     Active Substance: NELFINAVIR MESYLATE
     Indication: PRODUCT USED FOR UNKNOWN INDICATION
     Dosage: UNK
     Route: 064
  3. HIVID [Suspect]
     Active Substance: ZALCITABINE
     Indication: PRODUCT USED FOR UNKNOWN INDICATION
     Dosage: UNK
     Route: 064
  4. BACTRIM [Suspect]
     Active Substance: SULFAMETHOXAZOLE\TRIMETHOPRIM
     Indication: PRODUCT USED FOR UNKNOWN INDICATION
     Dosage: UNK
     Route: 064
  5. ZERIT [Suspect]
     Active Substance: STAVUDINE
     Indication: PRODUCT USED FOR UNKNOWN INDICATION
     Dosage: UNK
     Route: 064
  6. RETROVIR [Suspect]
     Active Substance: ZIDOVUDINE
     Indication: PRODUCT USED FOR UNKNOWN INDICATION
     Dosage: UNK
     Route: 064
  7. VIDEX [Suspect]
     Active Substance: DIDANOSINE
     Indication: PRODUCT USED FOR UNKNOWN INDICATION
     Dosage: UNK
     Route: 064
  8. VIDEX [Suspect]
     Active Substance: DIDANOSINE
     Indication: HIV INFECTION
     Dosage: 5 ML, QD
     Route: 048

REACTIONS (12)
  - Hyperkalaemia [Unknown]
  - Eczema [Unknown]
  - Candida infection [Unknown]
  - Regurgitation [Unknown]
  - Hypertonia [Unknown]
  - Foetal exposure during pregnancy [Recovered/Resolved]
  - Blood lactic acid increased [Not Recovered/Not Resolved]
  - Failure to thrive [Recovered/Resolved]
  - Decreased appetite [Unknown]
  - Agitation [Unknown]
  - Anaemia [Unknown]
  - Granulocytopenia [Recovering/Resolving]
